FAERS Safety Report 17841123 (Version 5)
Quarter: 2021Q3

REPORT INFORMATION
  Report Type: Spontaneous
  Country: US (occurrence: US)
  Receive Date: 20200529
  Receipt Date: 20210812
  Transmission Date: 20211014
  Serious: No
  Sender: FDA-Public Use
  Company Number: US-PFIZER INC-2019459300

PATIENT
  Age: 72 Year
  Sex: Male

DRUGS (5)
  1. LYRICA [Suspect]
     Active Substance: PREGABALIN
     Indication: MYALGIA
  2. LYRICA [Suspect]
     Active Substance: PREGABALIN
     Indication: NEUROPATHY PERIPHERAL
  3. LYRICA [Suspect]
     Active Substance: PREGABALIN
     Indication: BACK PAIN
  4. LYRICA [Suspect]
     Active Substance: PREGABALIN
     Indication: PAIN
  5. LYRICA [Suspect]
     Active Substance: PREGABALIN
     Indication: LUMBAR RADICULOPATHY
     Dosage: 225 MG, TWICE A DAY

REACTIONS (8)
  - Pain [Unknown]
  - Nervous system disorder [Unknown]
  - Constipation [Recovering/Resolving]
  - Paraesthesia [Unknown]
  - Pain in extremity [Unknown]
  - Hypoaesthesia [Unknown]
  - Loss of personal independence in daily activities [Unknown]
  - Back pain [Unknown]
